FAERS Safety Report 5585410-1 (Version None)
Quarter: 2008Q1

REPORT INFORMATION
  Report Type: 
  Country: None (occurrence: None)
  Receive Date: 20080109
  Receipt Date: 20080103
  Transmission Date: 20080703
  Serious: Yes (Hospitalization)
  Sender: FDA-Public Use
  Company Number: IT-AVENTIS-200715481EU

PATIENT
  Age: 92 Year
  Sex: Female

DRUGS (5)
  1. TRENTAL [Suspect]
     Indication: DRUG USE FOR UNKNOWN INDICATION
     Route: 048
     Dates: start: 20071019, end: 20071020
  2. LASITONE [Concomitant]
  3. FUROSEMIDE [Concomitant]
     Dosage: DOSE: 1 TABLET
     Route: 048
  4. ASPIRIN [Concomitant]
     Route: 048
  5. ZYLORIC [Concomitant]

REACTIONS (1)
  - PEMPHIGOID [None]
